FAERS Safety Report 5160801-1 (Version None)
Quarter: 2006Q4

REPORT INFORMATION
  Report Type: 
  Country: None (occurrence: None)
  Receive Date: 20060919
  Receipt Date: 20060629
  Transmission Date: 20070319
  Serious: No
  Sender: FDA-Public Use
  Company Number: BDI-008389

PATIENT
  Age: 70 Year
  Sex: Male

DRUGS (2)
  1. MULTIHANCE [Suspect]
     Indication: NEOPLASM MALIGNANT
     Dosage: 17 ML ONCE IV
     Route: 042
     Dates: start: 20060629, end: 20060629
  2. MULTIHANCE [Suspect]
     Indication: NUCLEAR MAGNETIC RESONANCE IMAGING
     Dosage: 17 ML ONCE IV
     Route: 042
     Dates: start: 20060629, end: 20060629

REACTIONS (1)
  - URTICARIA [None]
